FAERS Safety Report 19774639 (Version 2)
Quarter: 2021Q3

REPORT INFORMATION
  Report Type: Spontaneous
  Country: TR (occurrence: TR)
  Receive Date: 20210901
  Receipt Date: 20210928
  Transmission Date: 20211014
  Serious: Yes (Hospitalization)
  Sender: FDA-Public Use
  Company Number: TR-NOVOPROD-841269

PATIENT
  Age: 82 Year
  Sex: Female
  Weight: 90 kg

DRUGS (7)
  1. KARVEZIDE [Concomitant]
     Active Substance: HYDROCHLOROTHIAZIDE\IRBESARTAN
     Indication: HYPERTENSION
     Dosage: 300 MG, BID (2 TABLETS IN A DAY FOR 25 YEARS.)
     Route: 048
  2. DAFLON [DIOSMIN] [Concomitant]
     Active Substance: DIOSMIN
     Indication: HYPERTENSION
     Dosage: 500 MG, QD (ONCE A DAY FOR 20 DAYS)
     Route: 048
  3. EPDANTOIN [Concomitant]
     Indication: HYPERTENSION
     Dosage: 50 MG, BID (2 TABLETS IN A DAY FOR 25 YEARS)
     Route: 048
  4. NOVOMIX 30 PENFILL [Suspect]
     Active Substance: INSULIN ASPART
     Dosage: 54 IU, QD (30 IU IN THE MORNING AND 24 IU IN THE EVENING)
     Route: 058
  5. SANELOC [Concomitant]
     Active Substance: METOPROLOL
     Indication: HYPERTENSION
     Dosage: 50 MG, QD (2 TABLETS IN A DAY FOR 25 YEARS)
     Route: 048
  6. ULTROX [ROXITHROMYCIN] [Concomitant]
     Indication: BLOOD CHOLESTEROL INCREASED
     Dosage: 5 MG, BID (2 TABLETS IN A DAY FOR 25 YEARS)
     Route: 048
  7. NOVOMIX 30 PENFILL [Suspect]
     Active Substance: INSULIN ASPART
     Indication: TYPE 2 DIABETES MELLITUS
     Dosage: 42 IU, QD (14 IU IN THE MORNING, 28 IU IN THE EVENING).
     Route: 058

REACTIONS (2)
  - COVID-19 [Recovered/Resolved]
  - Blood glucose increased [Unknown]

NARRATIVE: CASE EVENT DATE: 20210803
